FAERS Safety Report 23980446 (Version 1)
Quarter: 2024Q2

REPORT INFORMATION
  Report Type: Spontaneous
  Country: US (occurrence: US)
  Receive Date: 20240617
  Receipt Date: 20240617
  Transmission Date: 20240716
  Serious: No
  Sender: FDA-Public Use
  Company Number: US-ELI_LILLY_AND_COMPANY-US202406009475

PATIENT
  Age: 81 Year
  Sex: Female

DRUGS (7)
  1. TRULICITY [Suspect]
     Active Substance: DULAGLUTIDE
     Indication: Diabetes mellitus
     Dosage: 0.75 MG, UNKNOWN
     Route: 058
     Dates: start: 2023
  2. TRULICITY [Suspect]
     Active Substance: DULAGLUTIDE
     Dosage: 1.5 MG, UNKNOWN
     Route: 058
  3. TRULICITY [Suspect]
     Active Substance: DULAGLUTIDE
     Dosage: 0.75 MG, UNKNOWN
     Route: 058
  4. GLUCOTROL XL [Concomitant]
     Active Substance: GLIPIZIDE
     Indication: Blood glucose abnormal
     Dosage: 5 MG, UNKNOWN
     Route: 065
  5. GLUCOTROL XL [Concomitant]
     Active Substance: GLIPIZIDE
     Dosage: 10 MG, UNKNOWN
     Route: 065
  6. TRIAMTERENE [Concomitant]
     Active Substance: TRIAMTERENE
     Indication: Urine analysis abnormal
  7. VERAPAMIL [Concomitant]
     Active Substance: VERAPAMIL HYDROCHLORIDE
     Indication: Blood pressure abnormal
     Dosage: 300 MG, UNKNOWN
     Route: 065

REACTIONS (6)
  - Pollakiuria [Not Recovered/Not Resolved]
  - Muscle tightness [Not Recovered/Not Resolved]
  - Joint stiffness [Not Recovered/Not Resolved]
  - Haemoglobin increased [Unknown]
  - Blood pressure increased [Recovering/Resolving]
  - Vision blurred [Recovered/Resolved]
